FAERS Safety Report 11435075 (Version 4)
Quarter: 2015Q4

REPORT INFORMATION
  Report Type: Report from Study
  Country: US (occurrence: None)
  Receive Date: 20150831
  Receipt Date: 20151105
  Transmission Date: 20160304
  Serious: No
  Sender: FDA-Public Use
  Company Number: ADR-2015-01458

PATIENT
  Sex: Male

DRUGS (2)
  1. LIORESAL [Suspect]
     Active Substance: BACLOFEN
     Indication: MUSCLE SPASTICITY
     Dosage: 93.39 MCG/DAY
  2. COMPOUNDED BACLOFEN INTRATHECAL (1000 MCG/ML) [Suspect]
     Active Substance: BACLOFEN
     Dosage: 110 MCG/DAY

REACTIONS (16)
  - Hyperhidrosis [None]
  - Urinary retention [None]
  - Vomiting [None]
  - Nausea [None]
  - Pain in extremity [None]
  - Muscle spasms [None]
  - Pain [None]
  - Gait disturbance [None]
  - Arthralgia [None]
  - Pyrexia [None]
  - Chills [None]
  - Asthenia [None]
  - Muscle spasticity [None]
  - Burning sensation [None]
  - Adverse drug reaction [None]
  - Dizziness [None]
